FAERS Safety Report 24196942 (Version 1)
Quarter: 2024Q3

REPORT INFORMATION
  Report Type: Spontaneous
  Country: US (occurrence: US)
  Receive Date: 20240810
  Receipt Date: 20240810
  Transmission Date: 20241017
  Serious: No
  Sender: SANOFI AVENTIS
  Company Number: US-SA-SAC20240806001337

PATIENT
  Age: 1 Year
  Sex: Male

DRUGS (1)
  1. DUPIXENT [Suspect]
     Active Substance: DUPILUMAB
     Dosage: 200 MG Q4W
     Route: 058
     Dates: start: 20240618

REACTIONS (2)
  - Sleep disorder due to a general medical condition [Unknown]
  - Off label use of device [Unknown]

NARRATIVE: CASE EVENT DATE: 20240618
